FAERS Safety Report 21510096 (Version 2)
Quarter: 2022Q4

REPORT INFORMATION
  Report Type: Spontaneous
  Country: US (occurrence: US)
  Receive Date: 20221026
  Receipt Date: 20221125
  Transmission Date: 20230113
  Serious: No
  Sender: FDA-Public Use
  Company Number: US-TAKEDA-2022TUS077265

PATIENT
  Age: 73 Year
  Sex: Female
  Weight: 44 kg

DRUGS (5)
  1. MOTEGRITY [Suspect]
     Active Substance: PRUCALOPRIDE SUCCINATE
     Indication: Constipation
     Dosage: 1 MILLIGRAM, QD
     Route: 065
  2. MOTEGRITY [Suspect]
     Active Substance: PRUCALOPRIDE SUCCINATE
     Dosage: 1 MILLIGRAM
     Route: 048
     Dates: start: 20221010, end: 20221020
  3. TOPAMAX [Concomitant]
     Active Substance: TOPIRAMATE
     Route: 065
  4. NEURONTIN [Concomitant]
     Active Substance: GABAPENTIN
     Indication: Migraine
     Route: 065
  5. PRUCALOPRIDE [Concomitant]
     Active Substance: PRUCALOPRIDE
     Indication: Constipation
     Dosage: 1 MILLIGRAM, QD
     Route: 048

REACTIONS (3)
  - Drug intolerance [Recovered/Resolved]
  - Abdominal pain upper [Recovered/Resolved]
  - Abdominal discomfort [Recovered/Resolved]

NARRATIVE: CASE EVENT DATE: 20221001
